FAERS Safety Report 5318435-1 (Version None)
Quarter: 2007Q2

REPORT INFORMATION
  Report Type: 
  Country: None (occurrence: None)
  Receive Date: 20070501
  Receipt Date: 20070418
  Transmission Date: 20071010
  Serious: Yes (Hospitalization)
  Sender: FDA-Public Use
  Company Number: MEDI-0005302

PATIENT
  Age: 54 Year
  Sex: Male
  Weight: 118.8424 kg

DRUGS (10)
  1. ETHYOL [Suspect]
     Indication: PROPHYLAXIS
     Dosage: 500 MG, DAILY WITH RADIATION THERAPY, SUBCUTANEOUS
     Route: 058
     Dates: start: 20061205, end: 20070102
  2. ETHYOL [Suspect]
     Indication: PROPHYLAXIS
     Dosage: 500 MG, DAILY WITH RADIATION THERAPY, SUBCUTANEOUS
     Route: 058
     Dates: start: 20070103, end: 20070103
  3. INTERFERON (INTERFERON) [Concomitant]
  4. GLUCOTROL [Concomitant]
  5. GLIPIZIDE [Concomitant]
  6. LEXAPRO [Concomitant]
  7. SALAGEN [Concomitant]
  8. COMPAZINE [Concomitant]
  9. CAPITOL W/CODEINE (CODEINE PHOSPHATE, PARACTAMOL) [Concomitant]
  10. RADIATION THERAPY [Concomitant]

REACTIONS (11)
  - CHILLS [None]
  - ERYTHEMA [None]
  - INJECTION SITE ERYTHEMA [None]
  - MALAISE [None]
  - ORAL MUCOSA EROSION [None]
  - PAIN OF SKIN [None]
  - PHARYNGOLARYNGEAL PAIN [None]
  - PYREXIA [None]
  - RADIATION INJURY [None]
  - RASH [None]
  - SKIN BURNING SENSATION [None]
